FAERS Safety Report 4765202-3 (Version None)
Quarter: 2005Q3

REPORT INFORMATION
  Report Type: 
  Country: None (occurrence: None)
  Receive Date: 20050906
  Receipt Date: 20050823
  Transmission Date: 20060218
  Serious: Yes (Hospitalization, Other)
  Sender: FDA-Public Use
  Company Number: 2005119504

PATIENT
  Age: 84 Year
  Sex: Female
  Weight: 71.2147 kg

DRUGS (3)
  1. LIPITOR [Suspect]
     Indication: BLOOD CHOLESTEROL
     Dosage: 10 MG (10 MG, 1 IN 1 D),
     Dates: start: 19990301, end: 20050501
  2. ATENOLOL [Concomitant]
  3. LOTENSIN [Concomitant]

REACTIONS (5)
  - ACUTE PULMONARY OEDEMA [None]
  - CARDIAC FAILURE CONGESTIVE [None]
  - MUSCLE ENZYME INCREASED [None]
  - MYOCARDIAL INFARCTION [None]
  - PULMONARY OEDEMA [None]
